FAERS Safety Report 23116221 (Version 1)
Quarter: 2023Q4

REPORT INFORMATION
  Report Type: Spontaneous
  Country: US (occurrence: US)
  Receive Date: 20231027
  Receipt Date: 20231027
  Transmission Date: 20240109
  Serious: No
  Sender: FDA-Public Use
  Company Number: US-BIOVITRUM-2023-US-016870

PATIENT
  Age: 43 Year
  Sex: Female

DRUGS (2)
  1. KINERET [Suspect]
     Active Substance: ANAKINRA
     Indication: Still^s disease
     Dosage: 100 MG, DAILY
     Route: 058
     Dates: start: 20230919
  2. KINERET [Suspect]
     Active Substance: ANAKINRA
     Dosage: 100 MG, DAILY
     Route: 058
     Dates: start: 20230920

REACTIONS (9)
  - Intentional product misuse [Not Recovered/Not Resolved]
  - Pain [Unknown]
  - Arthralgia [Unknown]
  - Abdominal discomfort [Unknown]
  - Feeding disorder [Unknown]
  - White blood cell count decreased [Unknown]
  - Loss of personal independence in daily activities [Unknown]
  - Injection site rash [Unknown]
  - Injection site discolouration [Unknown]

NARRATIVE: CASE EVENT DATE: 20230919
